FAERS Safety Report 21458300 (Version 10)
Quarter: 2025Q4

REPORT INFORMATION
  Report Type: Spontaneous
  Country: US (occurrence: US)
  Receive Date: 20221014
  Receipt Date: 20251105
  Transmission Date: 20260118
  Serious: No
  Sender: PFIZER
  Company Number: US-PFIZER INC-PV202200082337

PATIENT
  Age: 59 Year
  Sex: Female

DRUGS (1)
  1. IBRANCE [Suspect]
     Active Substance: PALBOCICLIB
     Indication: Breast cancer female
     Dosage: 125 MG, CYCLIC (IN THE MORNING, DAILY FOR 21 DAYS ON 7 DAYS OFF)
     Route: 048

REACTIONS (2)
  - Dyspnoea exertional [Unknown]
  - Overweight [Unknown]
